FAERS Safety Report 25895331 (Version 1)
Quarter: 2025Q4

REPORT INFORMATION
  Report Type: Spontaneous
  Country: US (occurrence: None)
  Receive Date: 20251007
  Receipt Date: 20251007
  Transmission Date: 20260119
  Serious: Yes (Hospitalization)
  Sender: FDA-CTU
  Company Number: None

PATIENT
  Age: 68 Year
  Sex: Male

DRUGS (11)
  1. SIROLIMUS [Suspect]
     Active Substance: SIROLIMUS
     Indication: Renal transplant
     Dosage: OTHER FREQUENCY : TAKE 2 TABLETS (2 MG) BY MOUTH IN THE MORNING. TAKE IN ADDITION TO 0.5MG FOR TOTAL DAILY DOSE OF 2.5;?
     Route: 048
  2. ATORVASTATIN TAB 10MG [Concomitant]
  3. AURYXIA TAB 210MG [Concomitant]
  4. BUMETANIDE TAB 2MG [Concomitant]
  5. CLOTRIMAZOLE TRO 10MG [Concomitant]
  6. ENVARSUS XR [Concomitant]
     Active Substance: TACROLIMUS
  7. FAMOTIDINE TAB 40MG [Concomitant]
  8. LACTULOSE [Concomitant]
     Active Substance: LACTULOSE
  9. LIPITOR TAB 20MG [Concomitant]
  10. LOKELMA PAK 10GM [Concomitant]
  11. MYCOPHENOLIC ACID [Concomitant]
     Active Substance: MYCOPHENOLIC ACID

REACTIONS (1)
  - Cytomegalovirus colitis [None]

NARRATIVE: CASE EVENT DATE: 20250701
